FAERS Safety Report 5813664-2 (Version None)
Quarter: 2008Q3

REPORT INFORMATION
  Report Type: 
  Country: None (occurrence: None)
  Receive Date: 20080717
  Receipt Date: 20080714
  Transmission Date: 20090109
  Serious: Yes (Other)
  Sender: FDA-Public Use
  Company Number: B0524926A

PATIENT
  Age: 63 Year
  Sex: Female
  Weight: 72 kg

DRUGS (3)
  1. LAPATINIB [Suspect]
     Indication: BREAST CANCER
     Dosage: 1500MG PER DAY
     Route: 048
     Dates: start: 20080430, end: 20080519
  2. LANSOPRAZOLE [Concomitant]
     Indication: DIAPHRAGMATIC HERNIA
     Dosage: 30MG PER DAY
     Route: 048
     Dates: start: 20050101
  3. HERCEPTIN [Concomitant]
     Dates: start: 20080528

REACTIONS (3)
  - ALANINE AMINOTRANSFERASE INCREASED [None]
  - HEPATIC PAIN [None]
  - HYPERBILIRUBINAEMIA [None]
